FAERS Safety Report 6425862-8 (Version None)
Quarter: 2009Q4

REPORT INFORMATION
  Report Type: 
  Country: None (occurrence: None)
  Receive Date: 20091103
  Receipt Date: 20090918
  Transmission Date: 20100525
  Serious: No
  Sender: FDA-Public Use
  Company Number: US-ABBOTT-09P-163-0590272-00

PATIENT
  Sex: Female

DRUGS (3)
  1. BIAXIN [Suspect]
     Indication: SINUSITIS
     Dates: start: 20090804, end: 20090806
  2. BACTRIM [Concomitant]
     Indication: SINUSITIS
     Dates: start: 20090808, end: 20090808
  3. VERAMIST [Concomitant]
     Indication: SEASONAL ALLERGY

REACTIONS (2)
  - DYSGEUSIA [None]
  - SALIVARY HYPERSECRETION [None]
